FAERS Safety Report 7606269-4 (Version None)
Quarter: 2011Q3

REPORT INFORMATION
  Report Type: 
  Country: None (occurrence: None)
  Receive Date: 20110713
  Receipt Date: 20110707
  Transmission Date: 20111222
  Serious: Yes (Other)
  Sender: FDA-Public Use
  Company Number: US-BAYER-2011-040103

PATIENT
  Age: 51 Year
  Sex: Female
  Weight: 295 kg

DRUGS (2)
  1. MIRENA [Suspect]
     Indication: CONTRACEPTION
     Dosage: 20 MCG/24HR, CONT
     Route: 015
     Dates: start: 20101118, end: 20110413
  2. MIRENA [Suspect]
     Indication: MENORRHAGIA

REACTIONS (3)
  - GENITAL HAEMORRHAGE [None]
  - DEVICE EXPULSION [None]
  - DEVICE DISLOCATION [None]
